FAERS Safety Report 20746864 (Version 1)
Quarter: 2022Q2

REPORT INFORMATION
  Report Type: Spontaneous
  Country: HR (occurrence: HR)
  Receive Date: 20220425
  Receipt Date: 20220425
  Transmission Date: 20220720
  Serious: Yes (Other)
  Sender: FDA-Public Use
  Company Number: HR-009507513-2204HRV002579

PATIENT
  Age: 57 Year
  Sex: Male
  Weight: 61 kg

DRUGS (10)
  1. CARBOPLATIN [Suspect]
     Active Substance: CARBOPLATIN
     Indication: Lung adenocarcinoma stage IV
     Dosage: 600 MILLIGRAM  IN 500 ML OF 0.9% NACL
     Route: 042
     Dates: start: 20200320
  2. PEMETREXED [Suspect]
     Active Substance: PEMETREXED
     Indication: Lung adenocarcinoma stage IV
     Dosage: 850 MILLIGRAM IN 250 ML 0.9% NACL
     Route: 042
     Dates: start: 20200320
  3. KEYTRUDA [Suspect]
     Active Substance: PEMBROLIZUMAB
     Indication: Lung adenocarcinoma stage IV
     Dosage: 200 MILLIGRAM IN 250 ML 0.9% NACL
     Route: 042
     Dates: start: 20200320
  4. RANITIDINE HYDROCHLORIDE [Concomitant]
     Active Substance: RANITIDINE HYDROCHLORIDE
     Dosage: 1 DOSAGE FORM 1 AMP. IN 100 ML OF 0.9% NACL
     Route: 042
     Dates: start: 20200320
  5. VITAMIN B12 [Concomitant]
     Active Substance: CYANOCOBALAMIN
     Dosage: EVERY 9 WEEKS DURING PEMETREXED TREATMENT
     Dates: start: 20200320
  6. FOLIC ACID [Concomitant]
     Active Substance: FOLIC ACID
  7. SODIUM CHLORIDE [Concomitant]
     Active Substance: SODIUM CHLORIDE
     Dosage: UNK
     Route: 042
     Dates: start: 20200320
  8. ONDANSETRON [Concomitant]
     Active Substance: ONDANSETRON
     Dosage: 8 MILLIGRAM IN 100 ML 0.9% NACL
     Route: 042
     Dates: start: 20200320
  9. IBUPROFEN [Concomitant]
     Active Substance: IBUPROFEN
     Dosage: UNK, AS NEEDED
  10. DEXAMETHASONE [Concomitant]
     Active Substance: DEXAMETHASONE
     Dosage: 20 MILLIGRAM IN 100 ML 0.9% NACL
     Route: 042
     Dates: start: 20200320

REACTIONS (4)
  - Nodule [Unknown]
  - Radiotherapy [Unknown]
  - Therapy partial responder [Unknown]
  - Femur fracture [Recovered/Resolved]

NARRATIVE: CASE EVENT DATE: 20200101
